FAERS Safety Report 12886288 (Version 1)
Quarter: 2016Q4

REPORT INFORMATION
  Report Type: Spontaneous
  Country: US (occurrence: US)
  Receive Date: 20161026
  Receipt Date: 20161026
  Transmission Date: 20170207
  Serious: No
  Sender: FDA-Public Use
  Company Number: US-PFIZER INC-2016490757

PATIENT
  Sex: Female

DRUGS (20)
  1. DIURIL [Suspect]
     Active Substance: CHLOROTHIAZIDE
     Dosage: UNK
  2. TRAMADOL. [Suspect]
     Active Substance: TRAMADOL
     Dosage: UNK
  3. COMPAZINE /00013302/ [Suspect]
     Active Substance: PROCHLORPERAZINE EDISYLATE
  4. MORPHINE SULFATE. [Suspect]
     Active Substance: MORPHINE SULFATE
     Dosage: UNK
  5. DEMEROL [Suspect]
     Active Substance: MEPERIDINE HYDROCHLORIDE
     Dosage: UNK
  6. TALWIN [Suspect]
     Active Substance: PENTAZOCINE LACTATE
  7. CAFFEINE. [Suspect]
     Active Substance: CAFFEINE
  8. AMYTAL SODIUM [Suspect]
     Active Substance: AMOBARBITAL SODIUM
     Dosage: UNK
  9. GANTANOL [Suspect]
     Active Substance: SULFAMETHOXAZOLE
     Dosage: UNK
  10. VALIUM [Suspect]
     Active Substance: DIAZEPAM
     Dosage: UNK
  11. PROPOFOL. [Suspect]
     Active Substance: PROPOFOL
     Indication: OESOPHAGOGASTRODUODENOSCOPY
  12. PRILOSEC [Suspect]
     Active Substance: OMEPRAZOLE MAGNESIUM
     Dosage: UNK
  13. PROPULSID [Suspect]
     Active Substance: CISAPRIDE
     Dosage: UNK
  14. VIOXX [Suspect]
     Active Substance: ROFECOXIB
     Dosage: UNK
  15. PLACIDYL [Suspect]
     Active Substance: ETHCHLORVYNOL
     Dosage: UNK
  16. PANALBA (NOVOBIOCIN SODIUM\TETRACYCLINE PHOSPHATE COMPLEX) [Suspect]
     Active Substance: NOVOBIOCIN SODIUM\TETRACYCLINE PHOSPHATE COMPLEX
     Dosage: UNK
  17. PREVACID [Suspect]
     Active Substance: LANSOPRAZOLE
     Dosage: UNK
  18. APC [Suspect]
     Active Substance: ASPIRIN\CAFFEINE\PHENACETIN
  19. ZOCOR [Suspect]
     Active Substance: SIMVASTATIN
     Dosage: UNK
  20. EDECRIN [Suspect]
     Active Substance: ETHACRYNIC ACID
     Dosage: UNK

REACTIONS (1)
  - Drug hypersensitivity [Unknown]
